FAERS Safety Report 6042396-3 (Version None)
Quarter: 2009Q1

REPORT INFORMATION
  Report Type: 
  Country: None (occurrence: None)
  Receive Date: 20090116
  Receipt Date: 20081202
  Transmission Date: 20090719
  Serious: Yes (Death, Hospitalization)
  Sender: FDA-Public Use
  Company Number: RU-PFIZER INC-2008097275

PATIENT

DRUGS (2)
  1. FRAGMIN [Suspect]
     Indication: ISCHAEMIC STROKE
     Dates: start: 20081020, end: 20081022
  2. FRAGMIN [Suspect]
     Dates: start: 20081023, end: 20081031

REACTIONS (3)
  - DISEASE PROGRESSION [None]
  - HAEMORRHAGIC STROKE [None]
  - ISCHAEMIC STROKE [None]
